FAERS Safety Report 9181039 (Version 2)
Quarter: 2013Q2

REPORT INFORMATION
  Report Type: Report from Study
  Country: CA (occurrence: CA)
  Receive Date: 20130322
  Receipt Date: 20130403
  Transmission Date: 20140414
  Serious: Yes (Other)
  Sender: FDA-Public Use
  Company Number: CA-JNJFOC-20130307633

PATIENT
  Age: 52 Year
  Sex: Female
  Weight: 51.45 kg

DRUGS (8)
  1. REMICADE [Suspect]
     Indication: CROHN^S DISEASE
     Dosage: FIRST DOSE??ONCE IN 6 TO 8 WEEKS
     Route: 042
     Dates: start: 20130311
  2. SOLUCORTEF [Concomitant]
     Indication: PREMEDICATION
     Route: 042
  3. PREDNISONE [Concomitant]
     Route: 065
  4. PROMETRIUM [Concomitant]
     Route: 065
  5. ESTROGEL [Concomitant]
     Route: 065
  6. COLESTIPOL [Concomitant]
     Route: 065
  7. TRAZODONE [Concomitant]
     Route: 065
  8. CALCIUM [Concomitant]
     Route: 065

REACTIONS (5)
  - Hypoaesthesia [Recovered/Resolved]
  - Infusion related reaction [Recovered/Resolved]
  - Skin warm [Recovered/Resolved]
  - Rash [Recovered/Resolved]
  - Headache [Recovered/Resolved]
